FAERS Safety Report 6154015-6 (Version None)
Quarter: 2009Q2

REPORT INFORMATION
  Report Type: 
  Country: None (occurrence: None)
  Receive Date: 20090414
  Receipt Date: 20090408
  Transmission Date: 20091009
  Serious: Yes (Other)
  Sender: FDA-Public Use
  Company Number: PHHY2009JP03717

PATIENT
  Sex: Female
  Weight: 50 kg

DRUGS (7)
  1. ZOMETA [Suspect]
     Indication: METASTASES TO BONE
     Dosage: 4 MG, UNK
     Route: 042
     Dates: start: 20080104, end: 20081024
  2. FARMORUBICIN [Concomitant]
     Dosage: UNK
     Route: 042
     Dates: start: 20050401, end: 20050513
  3. CYCLOPHOSPHAMIDE [Concomitant]
     Dosage: UNK
     Route: 042
     Dates: start: 20050401, end: 20050513
  4. TAXOL [Concomitant]
     Dosage: UNK
     Route: 042
     Dates: start: 20050701, end: 20051007
  5. CFT [Concomitant]
     Dosage: UNK
     Route: 048
     Dates: start: 20051104, end: 20080404
  6. PACLITAXEL [Concomitant]
     Dosage: UNK
     Route: 042
     Dates: start: 20080104
  7. DOCETAXEL [Concomitant]
     Dosage: UNK
     Route: 042
     Dates: start: 20080620

REACTIONS (11)
  - ABSCESS [None]
  - BONE DISORDER [None]
  - ORAL CAVITY FISTULA [None]
  - OSTEONECROSIS [None]
  - PAIN [None]
  - PRIMARY SEQUESTRUM [None]
  - PURULENT DISCHARGE [None]
  - RESORPTION BONE INCREASED [None]
  - SEQUESTRECTOMY [None]
  - STOMATITIS [None]
  - SWELLING [None]
